FAERS Safety Report 6747629-3 (Version None)
Quarter: 2010Q2

REPORT INFORMATION
  Report Type: 
  Country: None (occurrence: None)
  Receive Date: 20100528
  Receipt Date: 20100520
  Transmission Date: 20101027
  Serious: Yes (Hospitalization)
  Sender: FDA-Public Use
  Company Number: PHHO2010CZ06341

PATIENT
  Sex: Male
  Weight: 75 kg

DRUGS (6)
  1. BLINDED ALISKIREN ALI+TAB+CF [Suspect]
     Dosage: CODE NOT BROKEN
     Route: 048
  2. BLINDED ENALAPRIL COMP-ENA+ [Suspect]
     Dosage: CODE NOT BROKEN
     Route: 048
  3. BLINDED NO TREATMENT RECEIVED NOMED [Suspect]
     Dosage: CODE NOT BROKEN
     Route: 048
  4. COMPARATOR ENALAPRIL [Suspect]
     Indication: CARDIAC FAILURE
  5. ALISKIREN [Suspect]
     Indication: CARDIAC FAILURE
  6. ACE INHIBITOR NOS [Suspect]

REACTIONS (3)
  - RENAL ARTERY STENOSIS [None]
  - RENAL FAILURE CHRONIC [None]
  - VERTIGO [None]
